FAERS Safety Report 23473323 (Version 1)
Quarter: 2024Q1

REPORT INFORMATION
  Report Type: Spontaneous
  Country: GB (occurrence: GB)
  Receive Date: 20240203
  Receipt Date: 20240203
  Transmission Date: 20240410
  Serious: Yes (Other)
  Sender: FDA-Public Use
  Company Number: None

PATIENT
  Age: 68 Year
  Sex: Female
  Weight: 73 kg

DRUGS (14)
  1. LETROZOLE [Suspect]
     Active Substance: LETROZOLE
     Route: 002
     Dates: start: 20231201, end: 20231218
  2. GLIMEPIRIDE [Concomitant]
     Active Substance: GLIMEPIRIDE
     Dates: start: 20220913
  3. HYDROXYCHLOROQUINE SULFATE [Concomitant]
     Active Substance: HYDROXYCHLOROQUINE SULFATE
     Dates: start: 20220913
  4. HYDROMOL [Concomitant]
     Dosage: USE AS DIRECTED, EMOLLIENT
     Dates: start: 20220913
  5. FENBID [Concomitant]
     Dosage: TIME INTERVAL: 0.33333333 DAYS
     Dates: start: 20230323
  6. SIMVASTATIN [Concomitant]
     Active Substance: SIMVASTATIN
     Dosage: AT NIGHT
     Dates: start: 20220913
  7. ALOGLIPTIN [Concomitant]
     Active Substance: ALOGLIPTIN
     Dates: start: 20220913
  8. FERROUS FUMARATE [Concomitant]
     Active Substance: FERROUS FUMARATE
     Dosage: WITH ORANGE JUICE IN THE MORNING
     Dates: start: 20220913
  9. FOLIC ACID [Concomitant]
     Active Substance: FOLIC ACID
     Dosage: EXCEPT ON DAY OF METHOTRAXATE
     Dates: start: 20220913
  10. LOSARTAN [Concomitant]
     Active Substance: LOSARTAN
     Dates: start: 20220913
  11. METHOTREXATE [Concomitant]
     Active Substance: METHOTREXATE
     Dosage: (EIGHT TABLETS) TO BE TAKEN WEEKLY - NEED
     Dates: start: 20220913
  12. ESOMEPRAZOLE [Concomitant]
     Active Substance: ESOMEPRAZOLE
     Dates: start: 20220913
  13. ACETAMINOPHEN [Concomitant]
     Active Substance: ACETAMINOPHEN
     Dosage: TAKE 1 OR 2 4 TIMES/DAY
     Dates: start: 20220913
  14. METFORMIN [Concomitant]
     Active Substance: METFORMIN HYDROCHLORIDE
     Dosage: 1+1+2 WITH MEALS
     Dates: start: 20220913

REACTIONS (3)
  - Joint swelling [Recovering/Resolving]
  - Arthralgia [Recovering/Resolving]
  - Diabetes mellitus [Recovering/Resolving]

NARRATIVE: CASE EVENT DATE: 20231201
